FAERS Safety Report 21825195 (Version 1)
Quarter: 2023Q1

REPORT INFORMATION
  Report Type: Spontaneous
  Country: US (occurrence: US)
  Receive Date: 20230105
  Receipt Date: 20230105
  Transmission Date: 20230418
  Serious: No
  Sender: FDA-Public Use
  Company Number: US-COOPERSURGICAL, INC.-US-2022CPS001426

PATIENT
  Age: 29 Year
  Sex: Female
  Weight: 100.23 kg

DRUGS (2)
  1. PARAGARD T 380A [Suspect]
     Active Substance: COPPER
     Indication: Contraception
     Dosage: UNK
     Route: 015
     Dates: start: 20200204
  2. METFORMIN [Concomitant]
     Active Substance: METFORMIN HYDROCHLORIDE
     Indication: Polycystic ovaries
     Route: 065

REACTIONS (3)
  - Device dislocation [Not Recovered/Not Resolved]
  - Intermenstrual bleeding [Unknown]
  - Device issue [Unknown]

NARRATIVE: CASE EVENT DATE: 20220314
